FAERS Safety Report 16315503 (Version 1)
Quarter: 2019Q2

REPORT INFORMATION
  Report Type: Spontaneous
  Country: US (occurrence: US)
  Receive Date: 20190515
  Receipt Date: 20190515
  Transmission Date: 20190711
  Serious: Yes (Other)
  Sender: FDA-Public Use
  Company Number: US-SA-2019SA125226

PATIENT
  Age: 67 Year
  Sex: Female
  Weight: 86 kg

DRUGS (14)
  1. AMITRIPTYLINE [Concomitant]
     Active Substance: AMITRIPTYLINE
     Dosage: UNK
     Dates: start: 2010
  2. PROPAFENONE. [Concomitant]
     Active Substance: PROPAFENONE
     Dosage: UNK
     Dates: start: 2010
  3. LISINOPRIL. [Concomitant]
     Active Substance: LISINOPRIL
     Dosage: UNK
     Dates: start: 2010
  4. TRAMADOL. [Concomitant]
     Active Substance: TRAMADOL
     Dosage: UNK
     Dates: start: 2010
  5. ZOLPIDEM [Concomitant]
     Active Substance: ZOLPIDEM\ZOLPIDEM TARTRATE
     Dosage: UNK UNK, UNK
     Dates: start: 2010
  6. TAXOTERE [Suspect]
     Active Substance: DOCETAXEL
     Indication: BREAST CANCER FEMALE
     Dosage: 145-152 MG, Q3W
     Route: 042
     Dates: start: 20150603, end: 20150603
  7. HERCEPTIN [Concomitant]
     Active Substance: TRASTUZUMAB
  8. TAXOTERE [Suspect]
     Active Substance: DOCETAXEL
     Dosage: 145-152 MG, Q3W
     Route: 042
     Dates: start: 20150826, end: 20150826
  9. VICTOZA [Concomitant]
     Active Substance: LIRAGLUTIDE
     Dosage: UNK UNK, UNK
     Dates: start: 2010
  10. LEVOTHYROXINE. [Concomitant]
     Active Substance: LEVOTHYROXINE
     Dosage: UNK UNK, UNK
     Dates: start: 2010
  11. TIMOLOL. [Concomitant]
     Active Substance: TIMOLOL
     Dosage: UNK UNK, UNK
     Dates: start: 2015
  12. PARAPLATIN [Concomitant]
     Active Substance: CARBOPLATIN
  13. INSULIN [Concomitant]
     Active Substance: INSULIN NOS
     Dosage: UNK
     Dates: start: 2010
  14. PIOGLITAZONE. [Concomitant]
     Active Substance: PIOGLITAZONE
     Dosage: UNK
     Dates: start: 2010

REACTIONS (1)
  - Alopecia [Recovering/Resolving]

NARRATIVE: CASE EVENT DATE: 201606
